FAERS Safety Report 4510932-1 (Version None)
Quarter: 2004Q4

REPORT INFORMATION
  Report Type: 
  Country: None (occurrence: None)
  Receive Date: 20041025
  Receipt Date: 20031124
  Transmission Date: 20050328
  Serious: Yes (Hospitalization)
  Sender: FDA-Public Use
  Company Number: NSADSS2002043709

PATIENT
  Age: 85 Year
  Sex: Female
  Weight: 60.3284 kg

DRUGS (13)
  1. REMICADE [Suspect]
     Indication: RHEUMATOID ARTHRITIS
     Dosage: 3 MG/KG, 1 IN 1 AS NECESSARY, INTRAVENOUS DRIP
     Route: 041
     Dates: start: 20020520, end: 20020520
  2. REMICADE [Suspect]
     Indication: RHEUMATOID ARTHRITIS
     Dosage: 3 MG/KG, 1 IN 1 AS NECESSARY, INTRAVENOUS DRIP
     Route: 041
     Dates: start: 20021014, end: 20021014
  3. REMICADE [Suspect]
     Indication: RHEUMATOID ARTHRITIS
     Dosage: 3 MG/KG, 1 IN 1 AS NECESSARY, INTRAVENOUS DRIP
     Route: 041
     Dates: start: 20021106, end: 20021106
  4. ZANTAC [Concomitant]
  5. ZYRTEC [Concomitant]
  6. REGLAN [Concomitant]
  7. LONOX (LOMOTIL) [Concomitant]
  8. METHOTREXATE SODIUM [Concomitant]
  9. COUMADIN [Concomitant]
  10. FOLIC ACID [Concomitant]
  11. NEXIUM [Concomitant]
  12. SYNTHROID [Concomitant]
  13. VICODIN [Concomitant]

REACTIONS (3)
  - CARDIAC FAILURE CONGESTIVE [None]
  - CYSTITIS [None]
  - INFECTION [None]
